FAERS Safety Report 7915405-1 (Version None)
Quarter: 2011Q4

REPORT INFORMATION
  Report Type: 
  Country: None (occurrence: None)
  Receive Date: 20111115
  Receipt Date: 20111031
  Transmission Date: 20120403
  Serious: Yes (Hospitalization)
  Sender: FDA-Public Use
  Company Number: US-ELI_LILLY_AND_COMPANY-US200909003760

PATIENT
  Sex: Female
  Weight: 42.6 kg

DRUGS (3)
  1. FORTEO [Suspect]
     Indication: OSTEOPOROSIS
     Dosage: 20 UG, QD
     Route: 058
  2. THYROID THERAPY [Concomitant]
  3. FORTEO [Suspect]
     Dosage: 20 UG, QD
     Route: 058
     Dates: end: 20111010

REACTIONS (4)
  - NERVE COMPRESSION [None]
  - WEIGHT DECREASED [None]
  - UNDERWEIGHT [None]
  - FATIGUE [None]
